FAERS Safety Report 8168522-8 (Version None)
Quarter: 2012Q1

REPORT INFORMATION
  Report Type: 
  Country: None (occurrence: None)
  Receive Date: 20120227
  Receipt Date: 20120227
  Transmission Date: 20120608
  Serious: Yes (Other)
  Sender: FDA-Public Use
  Company Number: None

PATIENT
  Age: 83 Year
  Sex: Female
  Weight: 70.76 kg

DRUGS (2)
  1. ARICEPT [Concomitant]
     Indication: DELIRIUM
     Dosage: 23 MG
     Dates: start: 20120106, end: 20120120
  2. DONEPEZIL HCL [Suspect]
     Indication: DRUG THERAPY
     Dosage: 10 MG
     Route: 048
     Dates: start: 20081019, end: 20110911

REACTIONS (7)
  - DELIRIUM [None]
  - GASTRIC DISORDER [None]
  - HEART RATE DECREASED [None]
  - CONFUSIONAL STATE [None]
  - MUSCLE SPASMS [None]
  - FATIGUE [None]
  - ASTHENIA [None]
